FAERS Safety Report 14974584 (Version 2)
Quarter: 2018Q2

REPORT INFORMATION
  Report Type: Spontaneous
  Country: ES (occurrence: ES)
  Receive Date: 20180605
  Receipt Date: 20180619
  Transmission Date: 20180711
  Serious: Yes (Death)
  Sender: FDA-Public Use
  Company Number: ES-BAUSCH-BL-2018-015956

PATIENT
  Age: 71 Year
  Sex: Female
  Weight: 68.5 kg

DRUGS (3)
  1. BORTEZOMIB [Suspect]
     Active Substance: BORTEZOMIB
     Indication: MANTLE CELL LYMPHOMA STAGE IV
     Dosage: DOSAGE FORM: LYOPHILIZED POWDER?ADDITIONAL INFO: ON DAYS 1, 4,8 AND 11 OF EACH CYCLE
     Route: 058
     Dates: start: 201705
  2. DEXAMETHASONE. [Suspect]
     Active Substance: DEXAMETHASONE
     Indication: MANTLE CELL LYMPHOMA STAGE IV
     Dosage: ADDITIONAL INFO: ON DAYS 1, 2, 3, 4 OF EACH CYCLE
     Route: 048
     Dates: start: 201705
  3. RITUXIMAB. [Suspect]
     Active Substance: RITUXIMAB
     Indication: MANTLE CELL LYMPHOMA STAGE IV
     Dosage: ADDITIONAL INFO: ON DAY 1 OF EACH CYCLE
     Route: 065
     Dates: start: 201705

REACTIONS (1)
  - Disease progression [Fatal]
